FAERS Safety Report 4322875-7 (Version None)
Quarter: 2004Q1

REPORT INFORMATION
  Report Type: 
  Country: None (occurrence: None)
  Receive Date: 20040322
  Receipt Date: 20040308
  Transmission Date: 20041129
  Serious: Yes (Hospitalization)
  Sender: FDA-Public Use
  Company Number: 18869 (1)

PATIENT
  Age: 68 Year
  Sex: Female

DRUGS (5)
  1. TAMBOCOR [Suspect]
     Indication: ATRIAL FIBRILLATION
     Dosage: (2 IN 1 DAY (S))
     Route: 048
     Dates: start: 20011010
  2. VERAPAMIL HYDROCHLORIDE [Concomitant]
  3. TICLOPIDINE HCL [Concomitant]
  4. LOXONIN (OXOPROFEN SODIUM) [Concomitant]
  5. LISINOPRIL [Concomitant]

REACTIONS (2)
  - SICK SINUS SYNDROME [None]
  - SINUS ARREST [None]
